FAERS Safety Report 15183226 (Version 1)
Quarter: 2018Q3

REPORT INFORMATION
  Report Type: Spontaneous
  Country: US (occurrence: US)
  Receive Date: 20180723
  Receipt Date: 20180723
  Transmission Date: 20181010
  Serious: Yes (Other)
  Sender: FDA-Public Use
  Company Number: US-PFIZER INC-2018133377

PATIENT
  Age: 24 Year
  Sex: Female

DRUGS (12)
  1. CIPROFLOXACIN. [Suspect]
     Active Substance: CIPROFLOXACIN
     Indication: LUNG INFECTION
     Dosage: UNK
  2. LINEZOLID. [Suspect]
     Active Substance: LINEZOLID
     Indication: LUNG INFECTION
     Dosage: UNK
  3. LINEZOLID. [Suspect]
     Active Substance: LINEZOLID
     Indication: CRYPTOCOCCOSIS
  4. VORICONAZOLE. [Suspect]
     Active Substance: VORICONAZOLE
     Indication: LUNG INFECTION
     Dosage: UNK
  5. PIPERACILLIN/TAZOBACTAM [Suspect]
     Active Substance: PIPERACILLIN SODIUM\TAZOBACTAM SODIUM
     Indication: CRYPTOCOCCOSIS
  6. CIPROFLOXACIN. [Suspect]
     Active Substance: CIPROFLOXACIN
     Indication: CRYPTOCOCCOSIS
  7. VORICONAZOLE. [Suspect]
     Active Substance: VORICONAZOLE
     Indication: CRYPTOCOCCOSIS
  8. MICAFUNGIN [Suspect]
     Active Substance: MICAFUNGIN
     Indication: LUNG INFECTION
     Dosage: UNK
  9. PIPERACILLIN/TAZOBACTAM [Suspect]
     Active Substance: PIPERACILLIN SODIUM\TAZOBACTAM SODIUM
     Indication: LUNG INFECTION
     Dosage: UNK
  10. MICAFUNGIN [Suspect]
     Active Substance: MICAFUNGIN
     Indication: CRYPTOCOCCOSIS
  11. GANCICLOVIR. [Suspect]
     Active Substance: GANCICLOVIR
     Indication: LUNG INFECTION
     Dosage: UNK
  12. GANCICLOVIR. [Suspect]
     Active Substance: GANCICLOVIR
     Indication: CRYPTOCOCCOSIS

REACTIONS (2)
  - Pleural effusion [Recovering/Resolving]
  - Drug ineffective [Unknown]
